FAERS Safety Report 8243076-6 (Version None)
Quarter: 2012Q1

REPORT INFORMATION
  Report Type: 
  Country: None (occurrence: None)
  Receive Date: 20120314
  Receipt Date: 20100726
  Transmission Date: 20120608
  Serious: Yes (Other)
  Sender: FDA-Public Use
  Company Number: PHHY2010US49586

PATIENT
  Age: 30 Year
  Sex: Male

DRUGS (4)
  1. FANAPT [Suspect]
     Dosage: 6 MG
  2. PAXIL [Concomitant]
  3. DEPAKENE [Concomitant]
  4. BUSPAR [Concomitant]

REACTIONS (8)
  - INFLUENZA LIKE ILLNESS [None]
  - DIARRHOEA [None]
  - FATIGUE [None]
  - CHILLS [None]
  - CATATONIA [None]
  - DRY MOUTH [None]
  - SOMNOLENCE [None]
  - HYPERHIDROSIS [None]
